FAERS Safety Report 8259631-3 (Version None)
Quarter: 2012Q2

REPORT INFORMATION
  Report Type: 
  Country: None (occurrence: None)
  Receive Date: 20120404
  Receipt Date: 20120330
  Transmission Date: 20120825
  Serious: Yes (Other)
  Sender: FDA-Public Use
  Company Number: PHHY2012IT028012

PATIENT
  Sex: Male

DRUGS (4)
  1. LEUCOVORIN CALCIUM [Concomitant]
  2. OXALIPLATIN [Suspect]
     Indication: GASTRIC CANCER
     Dosage: 165 MG, CYCLIC
     Route: 042
     Dates: start: 20110627, end: 20110917
  3. ZOMETA [Suspect]
     Indication: GASTRIC CANCER
     Dosage: 4 MG, CYCLIC
     Route: 042
     Dates: start: 20110711, end: 20110917
  4. 1-U-D-5-DEOSSIRIBOFURANOSIL-5-FLUOROURACIL [Suspect]
     Indication: GASTRIC CANCER
     Dosage: 4680 MG, CYCLIC
     Route: 042
     Dates: start: 20110627, end: 20110917

REACTIONS (2)
  - HYPOACUSIS [None]
  - TINNITUS [None]
